FAERS Safety Report 13398805 (Version 3)
Quarter: 2020Q3

REPORT INFORMATION
  Report Type: Spontaneous
  Country: CA (occurrence: CA)
  Receive Date: 20170403
  Receipt Date: 20200923
  Transmission Date: 20201102
  Serious: Yes (Life-Threatening, Other)
  Sender: FDA-Public Use
  Company Number: CA-TEVA-755468ACC

PATIENT
  Age: 3 Year
  Sex: Male
  Weight: 14 kg

DRUGS (3)
  1. ETOPOSIDE. [Suspect]
     Active Substance: ETOPOSIDE
     Indication: RETINOBLASTOMA
     Dosage: 90 MILLIGRAM DAILY;
     Route: 042
  2. CARBOPLATIN. [Concomitant]
     Active Substance: CARBOPLATIN
  3. VINCRISTINE SULFATE INJECTION USP [Concomitant]
     Active Substance: VINCRISTINE SULFATE

REACTIONS (6)
  - Oxygen saturation decreased [Unknown]
  - Vomiting [Unknown]
  - Product use in unapproved indication [Unknown]
  - Eye swelling [Unknown]
  - Flushing [Unknown]
  - Swelling face [Unknown]
